FAERS Safety Report 6361268-8 (Version None)
Quarter: 2009Q3

REPORT INFORMATION
  Report Type: 
  Country: None (occurrence: None)
  Receive Date: 20090918
  Receipt Date: 20090908
  Transmission Date: 20100115
  Serious: Yes (Other)
  Sender: FDA-Public Use
  Company Number: US-JNJFOC-20090800695

PATIENT
  Sex: Female
  Weight: 109.77 kg

DRUGS (23)
  1. REMICADE [Suspect]
     Route: 042
     Dates: start: 20071201, end: 20090729
  2. REMICADE [Suspect]
     Route: 042
     Dates: start: 20071201, end: 20090729
  3. REMICADE [Suspect]
     Route: 042
     Dates: start: 20071201, end: 20090729
  4. REMICADE [Suspect]
     Indication: SARCOIDOSIS
     Route: 042
     Dates: start: 20071201, end: 20090729
  5. SKELAXIN [Concomitant]
     Indication: MYALGIA
  6. FLEXON [Concomitant]
  7. ZYRTEC [Concomitant]
     Indication: PREMEDICATION
  8. PREDNISONE [Concomitant]
     Indication: PREMEDICATION
  9. BENADRYL [Concomitant]
     Indication: PREMEDICATION
     Route: 042
  10. TYLENOL (CAPLET) [Concomitant]
     Indication: PREMEDICATION
     Route: 048
  11. TYLENOL 3 WITH CODEINE [Concomitant]
  12. LEVOXYL [Concomitant]
  13. LEXAPRO [Concomitant]
  14. NEXIUM [Concomitant]
  15. FUROSEMIDE [Concomitant]
  16. DIOVAN [Concomitant]
  17. CORGARD [Concomitant]
  18. TOBRAMYCIN [Concomitant]
     Route: 047
  19. VALIUM [Concomitant]
  20. MEDROL [Concomitant]
  21. MOBIC [Concomitant]
  22. PERCOCET [Concomitant]
  23. CAFERGOT [Concomitant]

REACTIONS (7)
  - BACK PAIN [None]
  - CHEST DISCOMFORT [None]
  - FLUSHING [None]
  - INFUSION RELATED REACTION [None]
  - RESPIRATORY DISTRESS [None]
  - THROAT TIGHTNESS [None]
  - URTICARIA [None]
